FAERS Safety Report 6331073-7 (Version None)
Quarter: 2009Q3

REPORT INFORMATION
  Report Type: 
  Country: None (occurrence: None)
  Receive Date: 20090817
  Receipt Date: 20090518
  Transmission Date: 20100115
  Serious: No
  Sender: FDA-Public Use
  Company Number: 20096818

PATIENT
  Age: 16 Year
  Sex: Male

DRUGS (3)
  1. LIORESAL [Suspect]
     Indication: MUSCLE SPASTICITY
     Dosage: MCG, DAILY, INTRATHECAL
     Route: 037
  2. ............. [Concomitant]
  3. ............... [Concomitant]

REACTIONS (2)
  - HYPOTENSION [None]
  - OVERDOSE [None]
